FAERS Safety Report 16184252 (Version 1)
Quarter: 2019Q2

REPORT INFORMATION
  Report Type: Spontaneous
  Country: US (occurrence: US)
  Receive Date: 20190411
  Receipt Date: 20190411
  Transmission Date: 20190711
  Serious: Yes (Other)
  Sender: FDA-Public Use
  Company Number: US-PFIZER INC-2019153370

PATIENT
  Age: 64 Year

DRUGS (1)
  1. TETRACYCLINE HCL [Suspect]
     Active Substance: TETRACYCLINE HYDROCHLORIDE

REACTIONS (4)
  - Anaphylactic reaction [Unknown]
  - Heart rate irregular [Unknown]
  - Drug hypersensitivity [Unknown]
  - Skin disorder [Unknown]
